FAERS Safety Report 5030577-7 (Version None)
Quarter: 2006Q2

REPORT INFORMATION
  Report Type: 
  Country: None (occurrence: None)
  Receive Date: 20060614
  Receipt Date: 20060602
  Transmission Date: 20061013
  Serious: Yes (Hospitalization, Disabling)
  Sender: FDA-Public Use
  Company Number: TCI2005A05039

PATIENT
  Age: 70 Year
  Sex: Male

DRUGS (1)
  1. LEUPLIN SR FOR INJECTION KIT 11.25 (LEUPRORELIN ACETATE FOR DEPOT SUSP [Suspect]
     Indication: PROSTATE CANCER
     Dosage: 11.25 MG (11.25 MG, 1 IN 12 WK) SUBCUTANEOUS
     Route: 058
     Dates: start: 20050523, end: 20051109

REACTIONS (4)
  - ACUTE MYELOID LEUKAEMIA [None]
  - BONE MARROW FAILURE [None]
  - CONVALESCENT [None]
  - PLATELET COUNT DECREASED [None]
